FAERS Safety Report 7267107-5 (Version None)
Quarter: 2011Q1

REPORT INFORMATION
  Report Type: 
  Country: None (occurrence: None)
  Receive Date: 20110201
  Receipt Date: 20110124
  Transmission Date: 20110831
  Serious: Yes (Other)
  Sender: FDA-Public Use
  Company Number: PHHY2009CA19623

PATIENT
  Sex: Female

DRUGS (13)
  1. GAVISCON [Concomitant]
  2. SANDOSTATIN LAR [Suspect]
     Dosage: 10 MG EVERY 4 WEEKS
     Route: 030
  3. LIPITOR [Concomitant]
  4. AVAPRO [Concomitant]
  5. ATIVAN [Concomitant]
  6. ASA [Concomitant]
  7. SANDOSTATIN LAR [Suspect]
     Dosage: 10 MG, BIW
     Route: 030
  8. VITAMIN D [Concomitant]
  9. SANDOSTATIN LAR [Suspect]
     Dosage: UNK
     Route: 030
  10. NEXIUM [Concomitant]
  11. APRATIA [Concomitant]
  12. SANDOSTATIN LAR [Suspect]
     Indication: ACROMEGALY
     Dosage: 20 MG, EVERY 4 WEEKS
     Route: 030
     Dates: start: 20070712
  13. SYNTHROID [Concomitant]

REACTIONS (23)
  - ARRHYTHMIA [None]
  - CRYING [None]
  - GASTROOESOPHAGEAL REFLUX DISEASE [None]
  - NAUSEA [None]
  - NASOPHARYNGITIS [None]
  - FATIGUE [None]
  - BLOOD GLUCOSE INCREASED [None]
  - PALPITATIONS [None]
  - BLOOD GLUCOSE DECREASED [None]
  - FALL [None]
  - CONTUSION [None]
  - ACCIDENT AT WORK [None]
  - TREMOR [None]
  - INJECTION SITE PAIN [None]
  - BLOOD PRESSURE INCREASED [None]
  - MALAISE [None]
  - MIGRAINE [None]
  - HEADACHE [None]
  - DIARRHOEA [None]
  - BACK PAIN [None]
  - ABDOMINAL PAIN UPPER [None]
  - ABDOMINAL DISTENSION [None]
  - ASTHENIA [None]
